FAERS Safety Report 5169170-4 (Version None)
Quarter: 2006Q4

REPORT INFORMATION
  Report Type: 
  Country: None (occurrence: None)
  Receive Date: 20061211
  Receipt Date: 20061129
  Transmission Date: 20070319
  Serious: Yes (Hospitalization)
  Sender: FDA-Public Use
  Company Number: 2006PK02550

PATIENT
  Age: 28914 Day
  Sex: Female
  Weight: 74 kg

DRUGS (7)
  1. ARIMIDEX [Suspect]
     Indication: BREAST CANCER FEMALE
     Route: 048
     Dates: start: 20040415, end: 20060428
  2. DILZEM [Concomitant]
     Indication: CORONARY ARTERY DISEASE
     Route: 048
  3. LISINOCOMP [Concomitant]
     Indication: HYPERTENSION
  4. ISOMONAT [Concomitant]
     Indication: CARDIAC FAILURE
  5. PARIET [Concomitant]
     Indication: PROPHYLAXIS
  6. NITROLINGUAL [Concomitant]
     Indication: CARDIAC FAILURE
  7. NITROLINGUAL [Concomitant]
     Indication: PROPHYLAXIS

REACTIONS (2)
  - HYPOAESTHESIA [None]
  - ISCHAEMIC CEREBRAL INFARCTION [None]
